FAERS Safety Report 6675081-5 (Version None)
Quarter: 2010Q2

REPORT INFORMATION
  Report Type: 
  Country: None (occurrence: None)
  Receive Date: 20100407
  Receipt Date: 20100323
  Transmission Date: 20101027
  Serious: Yes (Life-Threatening)
  Sender: FDA-Public Use
  Company Number: 2010001045

PATIENT
  Age: 72 Year
  Sex: Female
  Weight: 31.4 kg

DRUGS (6)
  1. ERLOTINIB HYDROCHLORIDE [Suspect]
     Indication: LUNG ADENOCARCINOMA
     Dosage: 150 MG, QD, ORAL
     Route: 048
     Dates: start: 20090804
  2. BETAMETHASONE [Suspect]
     Indication: LUNG ADENOCARCINOMA
     Dosage: 2 MG, QD, ORAL
     Route: 048
  3. PHENYTOIN [Concomitant]
  4. FAMOTIDINE [Concomitant]
  5. CANDESARTAN CILEXETIL [Concomitant]
  6. GLYCEOL (GLYCEOL) [Concomitant]

REACTIONS (1)
  - PNEUMOCYSTIS JIROVECI INFECTION [None]
